FAERS Safety Report 20030085 (Version 1)
Quarter: 2021Q4

REPORT INFORMATION
  Report Type: Spontaneous
  Country: TR (occurrence: TR)
  Receive Date: 20211103
  Receipt Date: 20211103
  Transmission Date: 20220303
  Serious: Yes (Hospitalization)
  Sender: FDA-Public Use
  Company Number: TR-TELIGENT, INC-20211000100

PATIENT

DRUGS (18)
  1. HYDROCORTISONE [Suspect]
     Active Substance: HYDROCORTISONE
     Indication: Hypothyroidism
     Dosage: 12 MILLIGRAM/SQ. METER, QD
  2. HYDROCORTISONE [Suspect]
     Active Substance: HYDROCORTISONE
     Indication: Adrenal insufficiency
     Dosage: 50 MILLIGRAM/SQ. METER, QD
     Route: 042
  3. HYDROCORTISONE [Suspect]
     Active Substance: HYDROCORTISONE
     Indication: Growth hormone deficiency
     Dosage: SECOND DOSE
     Route: 042
  4. HYDROCORTISONE [Suspect]
     Active Substance: HYDROCORTISONE
     Indication: Septic shock
     Dosage: 300 MILLIGRAM/SQ. METER, QD
     Route: 042
  5. HYDROCORTISONE [Suspect]
     Active Substance: HYDROCORTISONE
     Indication: Adrenocortical insufficiency acute
     Dosage: 100 MILLIGRAM/SQ. METER, QD
     Route: 042
  6. HYDROCORTISONE [Suspect]
     Active Substance: HYDROCORTISONE
     Dosage: 25 MILLIGRAM/SQ. METER, QD
     Route: 042
  7. HYDROCORTISONE [Suspect]
     Active Substance: HYDROCORTISONE
     Dosage: UNK
     Route: 048
  8. HYDROCORTISONE [Suspect]
     Active Substance: HYDROCORTISONE
     Dosage: 12 MILLIGRAM/SQ. METER, QD
     Route: 042
  9. LEVOTHYROXINE [Suspect]
     Active Substance: LEVOTHYROXINE
     Indication: Hypothyroidism
     Dosage: 2.5 MICROGRAM/KILOGRAM
  10. LEVOTHYROXINE [Suspect]
     Active Substance: LEVOTHYROXINE
     Indication: Adrenal insufficiency
  11. LEVOTHYROXINE [Suspect]
     Active Substance: LEVOTHYROXINE
     Indication: Growth hormone deficiency
  12. MIDAZOLAM [Suspect]
     Active Substance: MIDAZOLAM
     Indication: Sedation
     Dosage: UNKNOWN
  13. FENTANYL [Suspect]
     Active Substance: FENTANYL
     Indication: Sedation
  14. DOPAMINE [Suspect]
     Active Substance: DOPAMINE HYDROCHLORIDE
     Indication: Shock
     Dosage: UNKNOWN
  15. CEFTRIAXONE [Suspect]
     Active Substance: CEFTRIAXONE
     Indication: Shock
  16. METRONIDAZOLE [Suspect]
     Active Substance: METRONIDAZOLE
     Indication: Shock
  17. ATROPINE [Suspect]
     Active Substance: ATROPINE
     Indication: Sinus bradycardia
     Dosage: UNK, SINGLE
  18. CLARITHROMYCIN [Concomitant]
     Active Substance: CLARITHROMYCIN
     Indication: Cough
     Dosage: FIVE-DAY COURSE

REACTIONS (2)
  - Sinus bradycardia [Recovered/Resolved]
  - Therapy non-responder [Recovered/Resolved]
